FAERS Safety Report 12243440 (Version 2)
Quarter: 2016Q2

REPORT INFORMATION
  Report Type: Spontaneous
  Country: US (occurrence: US)
  Receive Date: 20160406
  Receipt Date: 20160525
  Transmission Date: 20160815
  Serious: Yes (Hospitalization)
  Sender: FDA-Public Use
  Company Number: US-VERTEX PHARMACEUTICALS-2016-002213

PATIENT
  Age: 18 Year
  Sex: Female

DRUGS (22)
  1. PULMOZYME [Concomitant]
     Active Substance: DORNASE ALFA
     Dosage: INHALE 2.5 MG INTO THE LUNGS, BID
     Route: 055
  2. AQUADEKS [Concomitant]
     Active Substance: MINERALS\VITAMINS
     Dosage: 2 DF, QD, WITH MEALS AND ENZYMES
     Route: 048
  3. CULTURELLE [Concomitant]
     Active Substance: LACTOBACILLUS RHAMNOSUS
     Dosage: 1 DF, QD
     Route: 048
  4. RHINOCORT AQUA [Concomitant]
     Active Substance: BUDESONIDE
     Dosage: 1 SPRAY IN EACH NOSTRIL, BID
     Route: 045
  5. INSULIN GLARGINE [Concomitant]
     Active Substance: INSULIN GLARGINE
     Dosage: INJECT 4 UNITS INTO SKIN, EVERY EVENING
  6. SINGULAIR [Concomitant]
     Active Substance: MONTELUKAST SODIUM
     Dosage: 1 DF, QD
     Route: 048
  7. MYCOSTATIN [Concomitant]
     Active Substance: NYSTATIN
     Dosage: APLLY ONE APPLICATION, TID
     Route: 061
  8. ALBUTEROL HFA [Concomitant]
     Active Substance: ALBUTEROL SULFATE
     Dosage: 2 PUFFS INTO LUNGS, FOUR TIMES DAILY
     Route: 055
  9. BACTROBAN [Concomitant]
     Active Substance: MUPIROCIN\MUPIROCIN CALCIUM
     Dosage: APPLY ONE APPLOCATION, PRN
     Route: 061
  10. MIRALAX [Concomitant]
     Active Substance: POLYETHYLENE GLYCOL 3350
     Dosage: 17 G, QD
     Route: 048
  11. NOVOLOG [Concomitant]
     Active Substance: INSULIN ASPART
     Dosage: 1 MG INTO SKIN ONCE, PRN
  12. ZYRTEC [Concomitant]
     Active Substance: CETIRIZINE HYDROCHLORIDE
     Dosage: TAKE 1 TABLET (10 MG TOTAL) BY MOUTH DAILY.
     Route: 048
  13. ATROVENT [Concomitant]
     Active Substance: IPRATROPIUM BROMIDE
     Dosage: TAKE 2.5 ML, BID
  14. TOBI [Concomitant]
     Active Substance: TOBRAMYCIN
     Dosage: 300 MG, BID
  15. ORKAMBI [Suspect]
     Active Substance: IVACAFTOR\LUMACAFTOR
     Indication: CYSTIC FIBROSIS
     Dosage: TWO TABLETS, BID
     Route: 048
     Dates: start: 20151206
  16. PROVENTIL [Concomitant]
     Active Substance: ALBUTEROL
     Dosage: TAKE 3 ML, FOUR TIMES DAILY
     Route: 055
  17. RISPERDAL [Concomitant]
     Active Substance: RISPERIDONE
     Dosage: 0.25 MG, QD
     Route: 048
  18. OCEAN SALINE NASAL SPRAY [Concomitant]
     Active Substance: SODIUM CHLORIDE
     Dosage: 1 SPRAY, BID
     Route: 045
  19. VANCOCIN [Concomitant]
     Active Substance: VANCOMYCIN HYDROCHLORIDE
     Dosage: 250 MG, BID
  20. PEPCID [Concomitant]
     Active Substance: FAMOTIDINE
     Dosage: 1 DF, BID
     Route: 048
  21. REGLAN [Concomitant]
     Active Substance: METOCLOPRAMIDE HYDROCHLORIDE
     Dosage: 1 DF, FOUR TIMES DAILY
     Route: 048
  22. CREON [Concomitant]
     Active Substance: PANCRELIPASE AMYLASE\PANCRELIPASE LIPASE\PANCRELIPASE PROTEASE
     Dosage: 2-4 WITH MEALS, 4 WITH GT FEEDINGS AT NIGHT

REACTIONS (2)
  - Infective pulmonary exacerbation of cystic fibrosis [Unknown]
  - Nasopharyngitis [Unknown]

NARRATIVE: CASE EVENT DATE: 20160302
